FAERS Safety Report 4746323-8 (Version None)
Quarter: 2005Q3

REPORT INFORMATION
  Report Type: 
  Country: None (occurrence: None)
  Receive Date: 20050817
  Receipt Date: 20050809
  Transmission Date: 20060218
  Serious: No
  Sender: FDA-Public Use
  Company Number: AU-BOEHRINGER INGELHEIM PHARMACEUTICALS, INC.-2005-BP-13656AU

PATIENT
  Sex: Female

DRUGS (1)
  1. ASASANTIN SR [Suspect]
     Route: 048

REACTIONS (1)
  - BLINDNESS UNILATERAL [None]
